FAERS Safety Report 22642352 (Version 1)
Quarter: 2023Q2

REPORT INFORMATION
  Report Type: Report from Study
  Country: US (occurrence: US)
  Receive Date: 20230626
  Receipt Date: 20230626
  Transmission Date: 20230721
  Serious: Yes (Other)
  Sender: FDA-Public Use
  Company Number: US-MALLINCKRODT-T202300689

PATIENT
  Sex: Female

DRUGS (1)
  1. CORTICOTROPIN [Suspect]
     Active Substance: CORTICOTROPIN
     Indication: Rheumatoid arthritis
     Dosage: 80 UNITS
     Route: 058
     Dates: start: 20220926

REACTIONS (9)
  - Diabetes mellitus [Unknown]
  - Pain in extremity [Unknown]
  - Feeling abnormal [Unknown]
  - Weight decreased [Unknown]
  - Blood glucose decreased [Recovering/Resolving]
  - Peripheral swelling [Unknown]
  - Headache [Unknown]
  - Insomnia [Recovered/Resolved]
  - Fatigue [Unknown]
